FAERS Safety Report 6135529-1 (Version None)
Quarter: 2009Q1

REPORT INFORMATION
  Report Type: 
  Country: None (occurrence: None)
  Receive Date: 20090327
  Receipt Date: 20090323
  Transmission Date: 20090719
  Serious: Yes (Hospitalization)
  Sender: FDA-Public Use
  Company Number: B0566603A

PATIENT
  Sex: Female

DRUGS (1)
  1. NABUCOX [Suspect]
     Dosage: 1G TWICE PER DAY
     Route: 048
     Dates: start: 20040601

REACTIONS (4)
  - ABDOMINAL PAIN UPPER [None]
  - HYPERTHERMIA [None]
  - MYALGIA [None]
  - RASH [None]
